FAERS Safety Report 7344571-4 (Version None)
Quarter: 2011Q1

REPORT INFORMATION
  Report Type: 
  Country: None (occurrence: None)
  Receive Date: 20110307
  Receipt Date: 20110307
  Transmission Date: 20110831
  Serious: Yes (Other)
  Sender: FDA-Public Use
  Company Number: None

PATIENT
  Age: 9 Year
  Sex: Male
  Weight: 30.8446 kg

DRUGS (6)
  1. SINGULAIR [Concomitant]
  2. SUDAFED PE [Concomitant]
  3. ACETAMINOPHEN AND CODEINE PHOSPHATE [Suspect]
     Indication: SINUSITIS
     Dosage: 10ML 6 HRLY AS NEEDED PO
     Route: 048
     Dates: start: 20110302, end: 20110303
  4. AZITHROMYCIN [Suspect]
     Indication: COUGH
     Dosage: 7.5ML, DECREASE TO 4ML DAY 2 DAILY PO
     Route: 048
     Dates: start: 20110302, end: 20110306
  5. GUAIFENISIN [Concomitant]
  6. WALGREENS CHILDREN'S CHEST CONGESTION EXPECTORANT [Concomitant]

REACTIONS (1)
  - HALLUCINATION, AUDITORY [None]
